FAERS Safety Report 10644436 (Version 1)
Quarter: 2014Q4

REPORT INFORMATION
  Report Type: Spontaneous
  Country: US (occurrence: US)
  Receive Date: 20141210
  Receipt Date: 20141210
  Transmission Date: 20150529
  Serious: Yes (Hospitalization, Other)
  Sender: FDA-Public Use
  Company Number: US-GLAXOSMITHKLINE-US2014GSK033976

PATIENT
  Age: 71 Year
  Sex: Male

DRUGS (16)
  1. CULTURELLE [Concomitant]
     Active Substance: LACTOBACILLUS RHAMNOSUS
  2. FUROSEMIDE. [Concomitant]
     Active Substance: FUROSEMIDE
  3. POTASSIUM [Concomitant]
     Active Substance: POTASSIUM
  4. LISINOPRIL. [Concomitant]
     Active Substance: LISINOPRIL
  5. ADVAIR HFA [Suspect]
     Active Substance: FLUTICASONE PROPIONATE\SALMETEROL XINAFOATE
     Indication: CHRONIC OBSTRUCTIVE PULMONARY DISEASE
     Dosage: 1 PUFF(S), BID
     Route: 065
     Dates: start: 2012
  6. WARFARIN [Concomitant]
     Active Substance: WARFARIN
  7. ALPRAZOLAM. [Concomitant]
     Active Substance: ALPRAZOLAM
  8. OMEPRAZOLE. [Concomitant]
     Active Substance: OMEPRAZOLE
  9. ROPINIROLE. [Concomitant]
     Active Substance: ROPINIROLE
  10. ATORVASTATIN [Concomitant]
     Active Substance: ATORVASTATIN
  11. ATENOLOL. [Concomitant]
     Active Substance: ATENOLOL
  12. ADVAIR HFA [Suspect]
     Active Substance: FLUTICASONE PROPIONATE\SALMETEROL XINAFOATE
     Indication: EMPHYSEMA
  13. ASPIRIN. [Concomitant]
     Active Substance: ASPIRIN
  14. MAGOX [Concomitant]
  15. SPIRIVA [Concomitant]
     Active Substance: TIOTROPIUM BROMIDE MONOHYDRATE
  16. OXYCODONE [Concomitant]
     Active Substance: OXYCODONE

REACTIONS (4)
  - Cholecystitis infective [Unknown]
  - Gallbladder operation [Unknown]
  - Hospitalisation [Unknown]
  - Cardiac pacemaker insertion [Recovered/Resolved]

NARRATIVE: CASE EVENT DATE: 201404
